FAERS Safety Report 6856920-1 (Version None)
Quarter: 2010Q3

REPORT INFORMATION
  Report Type: 
  Country: None (occurrence: None)
  Receive Date: 20100719
  Receipt Date: 20100715
  Transmission Date: 20110219
  Serious: Yes (Life-Threatening, Hospitalization, Other)
  Sender: FDA-Public Use
  Company Number: PHHY2010JP40954

PATIENT
  Age: 32 Year
  Sex: Female

DRUGS (5)
  1. SANDIMMUNE [Suspect]
     Indication: RENAL TRANSPLANT
     Dosage: 50 MG/DAY
     Route: 048
     Dates: end: 20090401
  2. NEORAL [Suspect]
     Indication: RENAL TRANSPLANT
     Dosage: 50 MG/DAY
     Route: 048
     Dates: start: 20090401
  3. CELLCEPT [Concomitant]
     Indication: RENAL TRANSPLANT
  4. PREDONINE [Concomitant]
     Indication: RENAL TRANSPLANT
  5. RADIOTHERAPY [Concomitant]

REACTIONS (9)
  - ABDOMINAL PAIN UPPER [None]
  - ADENOMA BENIGN [None]
  - BRAIN MASS [None]
  - CRANIOTOMY [None]
  - GASTROINTESTINAL TRACT ADENOMA [None]
  - HEADACHE [None]
  - LYMPHOMA [None]
  - MASS [None]
  - SURGERY [None]
